FAERS Safety Report 19888226 (Version 3)
Quarter: 2022Q1

REPORT INFORMATION
  Report Type: Spontaneous
  Country: BR (occurrence: BR)
  Receive Date: 20210927
  Receipt Date: 20220202
  Transmission Date: 20220424
  Serious: Yes (Hospitalization, Other)
  Sender: FDA-Public Use
  Company Number: BR-002147023-NVSC2021BR213894

PATIENT
  Sex: Male
  Weight: 90 kg

DRUGS (2)
  1. LUCENTIS [Suspect]
     Active Substance: RANIBIZUMAB
     Indication: Macular degeneration
     Dosage: UNK, 03 APPLICATIONS (DONT KNOW THE DOSE) EVERY 30 DAYS, STARTED 5 YEARS AGO (DONT REMEMBER CORRECT
     Route: 031
  2. LUCENTIS [Suspect]
     Active Substance: RANIBIZUMAB
     Dosage: UNK, EVERY 15 DAYS
     Route: 031

REACTIONS (6)
  - Transient ischaemic attack [Recovered/Resolved]
  - Haemorrhage [Not Recovered/Not Resolved]
  - Cataract [Unknown]
  - Blood cholesterol increased [Not Recovered/Not Resolved]
  - Visual impairment [Unknown]
  - Tachyphylaxis [Unknown]
